FAERS Safety Report 24053187 (Version 1)
Quarter: 2024Q3

REPORT INFORMATION
  Report Type: Spontaneous
  Country: CH (occurrence: CH)
  Receive Date: 20240705
  Receipt Date: 20240705
  Transmission Date: 20241017
  Serious: Yes (Hospitalization, Other)
  Sender: MSN LABORATORIES
  Company Number: CH-MSNLABS-2024MSNLIT01422

PATIENT

DRUGS (1)
  1. ATORVASTATIN [Suspect]
     Active Substance: ATORVASTATIN
     Indication: Product used for unknown indication
     Route: 065

REACTIONS (3)
  - Compartment syndrome [Recovering/Resolving]
  - Hypoaesthesia [Recovering/Resolving]
  - Rhabdomyolysis [Recovering/Resolving]
